FAERS Safety Report 9231311 (Version 1)
Quarter: 2013Q1

REPORT INFORMATION
  Report Type: Spontaneous
  Country: US (occurrence: None)
  Receive Date: 20121031
  Receipt Date: 20121031
  Transmission Date: 20140127
  Serious: No
  Sender: FDA-Public Use
  Company Number: PHEH2012US015764

PATIENT
  Age: 53 Year
  Sex: Male

DRUGS (3)
  1. GILENYA [Suspect]
     Indication: MULTIPLE SCLEROSIS
     Route: 048
     Dates: start: 201202
  2. METFORMIN (METFORMIN) [Concomitant]
  3. ACTOS [Concomitant]

REACTIONS (3)
  - Somnolence [None]
  - Depression [None]
  - Decreased interest [None]
